FAERS Safety Report 14281052 (Version 1)
Quarter: 2017Q4

REPORT INFORMATION
  Report Type: Report from Study
  Country: US (occurrence: US)
  Receive Date: 20171213
  Receipt Date: 20171213
  Transmission Date: 20180321
  Serious: Yes (Hospitalization, Other)
  Sender: FDA-Public Use
  Company Number: US-BRISTOL-MYERS SQUIBB COMPANY-BMS-2017-107956

PATIENT
  Age: 66 Year
  Sex: Male
  Weight: 70.57 kg

DRUGS (15)
  1. ACETAMINOPHEN. [Concomitant]
     Active Substance: ACETAMINOPHEN
     Indication: PAIN
     Dosage: 500 MG, UNK
     Route: 048
     Dates: start: 2007
  2. DOCUSATE SODIUM. [Concomitant]
     Active Substance: DOCUSATE SODIUM
     Indication: CONSTIPATION
     Dosage: 200 MG, UNK
     Route: 065
     Dates: start: 2016
  3. TRAZODONE [Concomitant]
     Active Substance: TRAZODONE HYDROCHLORIDE
     Indication: INSOMNIA
     Dosage: 150 MG, UNK
     Route: 048
     Dates: start: 20151211
  4. DEXTROMETHORPHAN HYDROBROMIDE AND GUAIFENESIN [Concomitant]
     Active Substance: DEXTROMETHORPHAN HYDROBROMIDE\GUAIFENESIN
     Indication: COUGH
     Dosage: 5 ML, UNK
     Route: 048
     Dates: start: 20170104
  5. NIVOLUMAB [Suspect]
     Active Substance: NIVOLUMAB
     Indication: PANCREATIC CARCINOMA
     Dosage: 3 MG/KG, Q2WK
     Route: 065
     Dates: start: 20171023
  6. LEVOTHYROXINE. [Concomitant]
     Active Substance: LEVOTHYROXINE
     Indication: HYPOTHYROIDISM
     Dosage: 112 ?G, UNK
     Route: 048
     Dates: start: 1996
  7. OMEPRAZOLE. [Concomitant]
     Active Substance: OMEPRAZOLE
     Indication: GASTROOESOPHAGEAL REFLUX DISEASE
     Dosage: 80 MG, UNK
     Route: 048
     Dates: start: 2013
  8. OSMOLITE [Concomitant]
     Indication: DECREASED APPETITE
     Dosage: 4 DF, UNK
     Route: 048
     Dates: start: 20160518
  9. FPA008 [Suspect]
     Active Substance: CABIRALIZUMAB
     Indication: PANCREATIC CARCINOMA
     Dosage: 4 MG/KG, Q2WK
     Route: 065
     Dates: start: 20171023
  10. CLONAZEPAM. [Concomitant]
     Active Substance: CLONAZEPAM
     Indication: INSOMNIA
     Dosage: 15 MG, UNK
     Route: 048
     Dates: start: 20131218
  11. PAROXETINE. [Concomitant]
     Active Substance: PAROXETINE
     Indication: DEPRESSION
     Dosage: 40 MG, UNK
     Route: 048
     Dates: start: 2002
  12. METFORMIN [Concomitant]
     Active Substance: METFORMIN HYDROCHLORIDE
     Indication: DIABETES MELLITUS
     Dosage: 2000 MG, UNK
     Route: 048
     Dates: start: 20161114
  13. PREGABALIN. [Concomitant]
     Active Substance: PREGABALIN
     Indication: NEUROPATHY PERIPHERAL
     Dosage: 300 MG, UNK
     Route: 048
     Dates: start: 20170731
  14. OXYCODONE [Concomitant]
     Active Substance: OXYCODONE
     Indication: PAIN
     Dosage: 15 MG, UNK
     Route: 048
     Dates: start: 20151218
  15. SENNA                              /00142201/ [Concomitant]
     Active Substance: SENNA LEAF
     Indication: CONSTIPATION
     Dosage: 8.6 MG, UNK
     Route: 048
     Dates: start: 2016

REACTIONS (3)
  - Cardiac disorder [Not Recovered/Not Resolved]
  - Blood creatine phosphokinase increased [Not Recovered/Not Resolved]
  - Troponin T increased [Not Recovered/Not Resolved]

NARRATIVE: CASE EVENT DATE: 20171124
